FAERS Safety Report 9470429 (Version 2)
Quarter: 2013Q4

REPORT INFORMATION
  Report Type: Report from Study
  Country: CA (occurrence: CA)
  Receive Date: 20130822
  Receipt Date: 20131010
  Transmission Date: 20140711
  Serious: Yes (Other)
  Sender: FDA-Public Use
  Company Number: CA-SANOFI-AVENTIS-2013SA082745

PATIENT
  Sex: Male

DRUGS (3)
  1. ELOXATIN [Suspect]
     Indication: GASTRIC CANCER
     Route: 065
     Dates: start: 20120320
  2. EPIRUBICIN HYDROCHLORIDE [Suspect]
     Indication: GASTRIC CANCER
     Dosage: FORM : SOLUTION FOR INTRAVENOUS
     Route: 065
     Dates: start: 20120320
  3. XELODA [Suspect]
     Indication: GASTRIC CANCER
     Route: 065
     Dates: start: 20120320

REACTIONS (2)
  - Toxicity to various agents [Unknown]
  - Adverse event [Unknown]
